FAERS Safety Report 7397879-0 (Version None)
Quarter: 2011Q2

REPORT INFORMATION
  Report Type: 
  Country: None (occurrence: None)
  Receive Date: 20110406
  Receipt Date: 20110323
  Transmission Date: 20111010
  Serious: Yes (Hospitalization)
  Sender: FDA-Public Use
  Company Number: TR-GENENTECH-313459

PATIENT
  Sex: Male

DRUGS (4)
  1. BLINDED PLACEBO [Suspect]
     Dosage: UNK
  2. BLINDED RANIBIZUMAB [Suspect]
     Dosage: UNK
  3. BLINDED PLACEBO [Suspect]
     Indication: DIABETIC RETINAL OEDEMA
     Dosage: UNK
     Route: 031
     Dates: start: 20081230
  4. BLINDED RANIBIZUMAB [Suspect]
     Indication: DIABETIC RETINAL OEDEMA
     Dosage: UNK
     Route: 031
     Dates: start: 20081230

REACTIONS (1)
  - RENAL FAILURE [None]
